FAERS Safety Report 23283683 (Version 1)
Quarter: 2023Q4

REPORT INFORMATION
  Report Type: Report from Study
  Country: US (occurrence: US)
  Receive Date: 20231211
  Receipt Date: 20231211
  Transmission Date: 20240109
  Serious: No
  Sender: FDA-Public Use
  Company Number: US-BIOVITRUM-2023-US-019686

PATIENT
  Age: 9 Year
  Sex: Female

DRUGS (1)
  1. KINERET [Suspect]
     Active Substance: ANAKINRA
     Indication: Juvenile idiopathic arthritis
     Dosage: 100 MG DAILY
     Route: 058

REACTIONS (3)
  - Hypersensitivity [Unknown]
  - Skin lesion [Unknown]
  - Intentional product misuse [Not Recovered/Not Resolved]
